FAERS Safety Report 7738508-3 (Version None)
Quarter: 2011Q3

REPORT INFORMATION
  Report Type: 
  Country: None (occurrence: None)
  Receive Date: 20110906
  Receipt Date: 20110826
  Transmission Date: 20111222
  Serious: Yes (Death, Life-Threatening, Hospitalization)
  Sender: FDA-Public Use
  Company Number: US-CYPR-2011-000035

PATIENT
  Sex: Female
  Weight: 99.3377 kg

DRUGS (4)
  1. ASPIRIN [Suspect]
     Indication: CORONARY ARTERY DISEASE
     Dosage: 81 MG QD ORAL, (325 MG QD ORAL)
     Route: 048
     Dates: start: 20110801
  2. ASPIRIN [Suspect]
     Indication: CORONARY ARTERY DISEASE
     Dosage: 81 MG QD ORAL, (325 MG QD ORAL)
     Route: 048
     Dates: start: 20091209, end: 20110801
  3. CLOPIDOGREL [Suspect]
     Indication: ANTIPLATELET THERAPY
     Dosage: 75 MG QD ORAL
     Route: 048
     Dates: start: 20110309, end: 20110803
  4. CYPHER STENT [Concomitant]

REACTIONS (2)
  - CORONARY ARTERY OCCLUSION [None]
  - MYOCARDIAL INFARCTION [None]
